FAERS Safety Report 8812404 (Version 1)
Quarter: 2012Q4

REPORT INFORMATION
  Report Type: 
  Country: US (occurrence: US)
  Receive Date: 20120927
  Receipt Date: 20120927
  Transmission Date: 20130627
  Serious: No
  Sender: FDA-Public Use
  Company Number: US-ASTRAZENECA-2012SE70621

PATIENT
  Age: 60 Year
  Sex: Female
  Weight: 67.6 kg

DRUGS (3)
  1. SYMBICORT PMDI [Suspect]
     Dosage: 160/4.5 MCG, DAILY
     Route: 055
  2. SINGULAIR [Concomitant]
  3. ZEGRID [Concomitant]

REACTIONS (8)
  - Hypoaesthesia [Unknown]
  - Muscle strain [Unknown]
  - Musculoskeletal pain [Unknown]
  - Tendonitis [Unknown]
  - Tenderness [Unknown]
  - Paraesthesia [Unknown]
  - Back pain [Unknown]
  - Asthenia [Unknown]
